FAERS Safety Report 8014014-6 (Version None)
Quarter: 2011Q4

REPORT INFORMATION
  Report Type: 
  Country: None (occurrence: None)
  Receive Date: 20111229
  Receipt Date: 20111103
  Transmission Date: 20120403
  Serious: Yes (Life-Threatening)
  Sender: FDA-Public Use
  Company Number: US-ROCHE-799490

PATIENT
  Sex: Male
  Weight: 70.824 kg

DRUGS (12)
  1. TRIAMCINOLONE ACETONIDE [Concomitant]
     Dosage: 1 APPLICATION SPARINGLY TO AFFECTED AREA, UNTIL CLEAR
  2. RIBAVIRIN [Suspect]
     Indication: HEPATITIS C
     Route: 048
     Dates: start: 20110811, end: 20110817
  3. NADOLOL [Concomitant]
  4. VIAGRA [Concomitant]
  5. COMBIVENT [Concomitant]
     Dosage: 103-18 MCG/ACT, 2 PUFFS
  6. TRAZODONE HCL [Concomitant]
     Indication: INSOMNIA
     Dosage: 0.5-1 TABLET, AT BEDTIME
  7. QVAR 40 [Concomitant]
     Dosage: 80 MCG/ACT AEROSOL 2 PUFFS
  8. PEGASYS [Suspect]
     Indication: HEPATITIS C
     Route: 058
     Dates: start: 20110811, end: 20110817
  9. CITALOPRAM [Concomitant]
     Indication: DEPRESSION
  10. OMEPRAZOLE [Concomitant]
     Indication: GASTROOESOPHAGEAL REFLUX DISEASE
  11. TELAPREVIR [Suspect]
     Indication: HEPATITIS C
     Route: 048
     Dates: start: 20110811, end: 20110817
  12. FLUOXETINE HYDROCHLORIDE [Concomitant]
     Dosage: IN THE MORNING

REACTIONS (3)
  - HYPOTENSION [None]
  - PNEUMONIA [None]
  - SEPSIS [None]
